FAERS Safety Report 7928516-1 (Version None)
Quarter: 2011Q4

REPORT INFORMATION
  Report Type: 
  Country: None (occurrence: None)
  Receive Date: 20111118
  Receipt Date: 20111108
  Transmission Date: 20120403
  Serious: Yes (Other)
  Sender: FDA-Public Use
  Company Number: US-ELI_LILLY_AND_COMPANY-US201111000414

PATIENT
  Age: 65 Year
  Sex: Female

DRUGS (3)
  1. VITAMIN C                          /00008001/ [Concomitant]
  2. CYMBALTA [Suspect]
     Dosage: 30 MG, EACH MORNING
     Dates: start: 20111031
  3. CYMBALTA [Suspect]
     Indication: ANXIETY
     Dosage: 30 MG, QD
     Dates: start: 20111025, end: 20111029

REACTIONS (17)
  - ABNORMAL DREAMS [None]
  - HYPERHIDROSIS [None]
  - AGITATION [None]
  - HEADACHE [None]
  - DYSPNOEA [None]
  - MIDDLE INSOMNIA [None]
  - ANGINA PECTORIS [None]
  - PAIN [None]
  - ABDOMINAL PAIN UPPER [None]
  - PALPITATIONS [None]
  - DRUG DOSE OMISSION [None]
  - NERVOUSNESS [None]
  - FATIGUE [None]
  - DIZZINESS [None]
  - ABDOMINAL DISCOMFORT [None]
  - DECREASED APPETITE [None]
  - CHEST DISCOMFORT [None]
